FAERS Safety Report 21219692 (Version 1)
Quarter: 2022Q3

REPORT INFORMATION
  Report Type: Spontaneous
  Country: US (occurrence: US)
  Receive Date: 20220817
  Receipt Date: 20220817
  Transmission Date: 20221027
  Serious: Yes (Other)
  Sender: FDA-Public Use
  Company Number: US-MLMSERVICE-20220801-3709311-4

PATIENT
  Age: 43 Year
  Sex: Male

DRUGS (2)
  1. CLOZAPINE [Suspect]
     Active Substance: CLOZAPINE
     Indication: Schizoaffective disorder
     Dosage: 350 MILLIGRAM, ONCE A DAY (AT BEDTIME)
     Route: 065
  2. CLOZAPINE [Suspect]
     Active Substance: CLOZAPINE
     Dosage: 500 MILLIGRAM, ONCE A DAY (AT BEDTIME)
     Route: 065

REACTIONS (6)
  - Bladder disorder [Unknown]
  - Faecaloma [Unknown]
  - Urinary tract infection [Not Recovered/Not Resolved]
  - Small intestinal obstruction [Unknown]
  - Hydronephrosis [Unknown]
  - Abdominal distension [Unknown]
